FAERS Safety Report 25691356 (Version 1)
Quarter: 2025Q3

REPORT INFORMATION
  Report Type: Spontaneous
  Country: US (occurrence: US)
  Receive Date: 20250818
  Receipt Date: 20250818
  Transmission Date: 20251020
  Serious: Yes (Other)
  Sender: UNITED THERAPEUTICS
  Company Number: US-UNITED THERAPEUTICS-UNT-2025-028275

PATIENT
  Age: 69 Year
  Sex: Female

DRUGS (13)
  1. REMODULIN [Suspect]
     Active Substance: TREPROSTINIL
     Indication: Pulmonary arterial hypertension
     Route: 041
  2. REMODULIN [Suspect]
     Active Substance: TREPROSTINIL
     Indication: Antisynthetase syndrome
  3. REMODULIN [Suspect]
     Active Substance: TREPROSTINIL
     Indication: Mixed connective tissue disease
  4. REMODULIN [Suspect]
     Active Substance: TREPROSTINIL
     Indication: Scleroderma
  5. SOTATERCEPT [Suspect]
     Active Substance: SOTATERCEPT
     Indication: Pulmonary arterial hypertension
  6. SOTATERCEPT [Suspect]
     Active Substance: SOTATERCEPT
     Indication: Antisynthetase syndrome
  7. SOTATERCEPT [Suspect]
     Active Substance: SOTATERCEPT
     Indication: Mixed connective tissue disease
  8. SOTATERCEPT [Suspect]
     Active Substance: SOTATERCEPT
     Indication: Scleroderma
  9. SOTATERCEPT [Suspect]
     Active Substance: SOTATERCEPT
  10. TADALAFIL [Concomitant]
     Active Substance: TADALAFIL
     Indication: Pulmonary arterial hypertension
  11. TADALAFIL [Concomitant]
     Active Substance: TADALAFIL
     Indication: Antisynthetase syndrome
  12. TADALAFIL [Concomitant]
     Active Substance: TADALAFIL
     Indication: Mixed connective tissue disease
  13. TADALAFIL [Concomitant]
     Active Substance: TADALAFIL
     Indication: Scleroderma

REACTIONS (1)
  - Pericardial effusion [Not Recovered/Not Resolved]
